FAERS Safety Report 21389729 (Version 1)
Quarter: 2022Q3

REPORT INFORMATION
  Report Type: Report from Study
  Country: BR (occurrence: BR)
  Receive Date: 20220929
  Receipt Date: 20220929
  Transmission Date: 20221027
  Serious: Yes (Other)
  Sender: FDA-Public Use
  Company Number: BR-NOVARTISPH-NVSC2022BR219107

PATIENT
  Sex: Male

DRUGS (2)
  1. AMLODIPINE\VALSARTAN [Suspect]
     Active Substance: AMLODIPINE\VALSARTAN
     Indication: Hypertension
     Dosage: UNK (STARTED 5 YEARS AGO) (320MG + 10)
     Route: 065
  2. CLOPIDOGREL [Suspect]
     Active Substance: CLOPIDOGREL BISULFATE
     Indication: Product used for unknown indication
     Dosage: UNK (75)
     Route: 065

REACTIONS (5)
  - Vascular dementia [Unknown]
  - Agitation [Unknown]
  - Stubbornness [Unknown]
  - Malaise [Unknown]
  - Hypertension [Unknown]
